FAERS Safety Report 12912417 (Version 1)
Quarter: 2016Q4

REPORT INFORMATION
  Report Type: Spontaneous
  Country: US (occurrence: US)
  Receive Date: 20161104
  Receipt Date: 20161104
  Transmission Date: 20170207
  Serious: No
  Sender: FDA-Public Use
  Company Number: US-TEVA-701962USA

PATIENT
  Sex: Male

DRUGS (1)
  1. COPAXONE [Suspect]
     Active Substance: GLATIRAMER ACETATE
     Dosage: FORM STRENGTH: UNKNOWN

REACTIONS (8)
  - Spinal osteoarthritis [Unknown]
  - Urticaria [Unknown]
  - Injection site haemorrhage [Unknown]
  - Feeling hot [Unknown]
  - Pruritus [Unknown]
  - Feeling abnormal [Unknown]
  - Injection site reaction [Unknown]
  - Dizziness [Unknown]
